FAERS Safety Report 8490317-6 (Version None)
Quarter: 2012Q3

REPORT INFORMATION
  Report Type: 
  Country: None (occurrence: None)
  Receive Date: 20120705
  Receipt Date: 20120625
  Transmission Date: 20120928
  Serious: Yes (Death, Hospitalization, Other)
  Sender: FDA-Public Use
  Company Number: GB-CELGENEUS-167-50794-12020715

PATIENT
  Sex: Female
  Weight: 66.3 kg

DRUGS (6)
  1. DOMPERIDONE [Concomitant]
     Indication: NAUSEA
     Route: 065
  2. ALLOPURINOL [Concomitant]
     Indication: PROPHYLAXIS
     Dosage: 300 MILLIGRAM
     Route: 065
     Dates: start: 20120116
  3. VIDAZA [Suspect]
     Indication: MYELODYSPLASTIC SYNDROME
     Dosage: 130 MILLIGRAM
     Route: 058
     Dates: start: 20120116, end: 20120124
  4. GRANISETRON [Concomitant]
     Indication: NAUSEA
     Route: 065
     Dates: start: 20120116
  5. VIDAZA [Suspect]
     Dosage: 130 MILLIGRAM
     Route: 058
     Dates: start: 20120213, end: 20120217
  6. TRANEXAMIC ACID [Concomitant]
     Route: 065

REACTIONS (8)
  - VOMITING [None]
  - WEIGHT DECREASED [None]
  - SUBDURAL HAEMORRHAGE [None]
  - GOUT [None]
  - MYELODYSPLASTIC SYNDROME TRANSFORMATION [None]
  - ACUTE MYELOID LEUKAEMIA [None]
  - NAUSEA [None]
  - NO THERAPEUTIC RESPONSE [None]
